FAERS Safety Report 9024528 (Version 1)
Quarter: 2013Q1

REPORT INFORMATION
  Report Type: Spontaneous
  Country: US (occurrence: US)
  Receive Date: 20130121
  Receipt Date: 20130121
  Transmission Date: 20140127
  Serious: Yes (Death, Hospitalization, Other)
  Sender: FDA-Public Use
  Company Number: US-PAR PHARMACEUTICAL, INC-2013SCPR005114

PATIENT
  Age: 40 Year
  Sex: Female

DRUGS (2)
  1. BUPROPION HCL XL [Suspect]
     Indication: PRODUCT USED FOR UNKNOWN INDICATION
     Dosage: UNK, UNKNOWN
     Route: 048
  2. ETHANOL [Suspect]
     Indication: PRODUCT USED FOR UNKNOWN INDICATION
     Dosage: UNK, UNKNOWN
     Route: 048

REACTIONS (9)
  - Toxicity to various agents [Fatal]
  - Pulseless electrical activity [Fatal]
  - Hepatic steatosis [Unknown]
  - Metabolic acidosis [Unknown]
  - Completed suicide [Fatal]
  - Cardiac arrest [Fatal]
  - Death [Fatal]
  - Grand mal convulsion [Unknown]
  - Coma [Unknown]
